FAERS Safety Report 10656711 (Version 3)
Quarter: 2015Q1

REPORT INFORMATION
  Report Type: Spontaneous
  Country: IT (occurrence: IT)
  Receive Date: 20141217
  Receipt Date: 20150219
  Transmission Date: 20150720
  Serious: Yes (Hospitalization)
  Sender: FDA-Public Use
  Company Number: IT-AUROBINDO-AUR-APL-2014-12947

PATIENT
  Age: 63 Year
  Sex: Male

DRUGS (6)
  1. DEURSIL [Concomitant]
     Active Substance: URSODIOL
     Indication: PRODUCT USED FOR UNKNOWN INDICATION
     Dosage: 300 MG, TWO TIMES A DAY (HOURS 8-20)
     Route: 048
  2. DIBASE [Concomitant]
     Active Substance: CHOLECALCIFEROL
     Indication: PRODUCT USED FOR UNKNOWN INDICATION
     Dosage: 20 GTT, EVERY WEEK (EVERY WEDNESDAY)
     Route: 065
  3. FOLINA                             /00024201/ [Concomitant]
     Active Substance: FOLIC ACID
     Indication: PRODUCT USED FOR UNKNOWN INDICATION
     Dosage: 1 DF, UNK
     Route: 065
  4. GABAPENTIN TEVA [Concomitant]
     Active Substance: GABAPENTIN
     Indication: PRODUCT USED FOR UNKNOWN INDICATION
     Dosage: 300 MG, TWO TIMES A DAY(HOURS 8-20)
     Route: 048
  5. DIAZEPAM. [Concomitant]
     Active Substance: DIAZEPAM
     Indication: PRODUCT USED FOR UNKNOWN INDICATION
     Dosage: 10 GTT, 3 TIMES A DAY (HOURS 8-14-20)
     Route: 048
  6. ALENDRONIC ACID 70 [Suspect]
     Active Substance: ALENDRONIC ACID
     Indication: OSTEOPOROSIS
     Dosage: 70 MG, EVERY WEEK
     Route: 048
     Dates: start: 20140403, end: 20140604

REACTIONS (10)
  - Melaena [Unknown]
  - Hypotension [None]
  - Haemoglobin decreased [Unknown]
  - Decreased appetite [Unknown]
  - Oesophageal ulcer [Recovered/Resolved]
  - Anaemia [Recovered/Resolved]
  - Abdominal pain [Unknown]
  - Pyrexia [Unknown]
  - Abdominal pain upper [Unknown]
  - Vomiting [Unknown]

NARRATIVE: CASE EVENT DATE: 20140812
